FAERS Safety Report 6475484-8 (Version None)
Quarter: 2009Q4

REPORT INFORMATION
  Report Type: 
  Country: None (occurrence: None)
  Receive Date: 20091204
  Receipt Date: 20091125
  Transmission Date: 20100525
  Serious: Yes (Other)
  Sender: FDA-Public Use
  Company Number: PHHY2009JP15392

PATIENT
  Age: 68 Year
  Sex: Male

DRUGS (4)
  1. AMN107 AMN+CAP [Suspect]
     Indication: CHRONIC MYELOID LEUKAEMIA
     Dosage: 400 MG/DAY
     Route: 048
     Dates: start: 20090319, end: 20090410
  2. AMN107 AMN+CAP [Suspect]
     Dosage: 400 MG/DAY
     Route: 048
     Dates: start: 20090423, end: 20090427
  3. AMN107 AMN+CAP [Suspect]
     Dosage: 400 MG/DAY
     Route: 048
     Dates: start: 20090501, end: 20090507
  4. AMN107 AMN+CAP [Suspect]
     Dosage: 800 MG/DAY
     Route: 048
     Dates: start: 20090508, end: 20090511

REACTIONS (1)
  - ELECTROCARDIOGRAM QT PROLONGED [None]
